FAERS Safety Report 4675681-8 (Version None)
Quarter: 2005Q2

REPORT INFORMATION
  Report Type: 
  Country: None (occurrence: None)
  Receive Date: 20050527
  Receipt Date: 20041013
  Transmission Date: 20051028
  Serious: No
  Sender: FDA-Public Use
  Company Number: US-BRISTOL-MYERS SQUIBB COMPANY-12730727

PATIENT
  Age: 77 Year
  Sex: Male
  Weight: 75 kg

DRUGS (6)
  1. ERBITUX [Suspect]
     Indication: COLON CANCER
     Dosage: HELD DRUG.  REINTRODUCED AT A DECREASED DOSE X 1 WEEK.
     Route: 042
     Dates: start: 20040101, end: 20040101
  2. BENADRYL [Concomitant]
     Indication: PREMEDICATION
     Route: 042
     Dates: start: 20040101, end: 20040101
  3. FOLIC ACID [Concomitant]
  4. LEXXEL [Concomitant]
  5. MULTI-VITAMINS [Concomitant]
  6. PRILOSEC [Concomitant]

REACTIONS (1)
  - BLEPHARITIS [None]
